FAERS Safety Report 18238466 (Version 1)
Quarter: 2020Q3

REPORT INFORMATION
  Report Type: Spontaneous
  Country: US (occurrence: US)
  Receive Date: 20200907
  Receipt Date: 20200907
  Transmission Date: 20201103
  Serious: No
  Sender: FDA-Public Use
  Company Number: US-PFIZER INC-2020343397

PATIENT
  Age: 31 Year
  Sex: Female

DRUGS (2)
  1. XELJANZ XR [Suspect]
     Active Substance: TOFACITINIB CITRATE
     Dosage: 11 MG
     Dates: start: 20200806
  2. XELJANZ XR [Suspect]
     Active Substance: TOFACITINIB CITRATE
     Dosage: 11 MG
     Dates: start: 20200809

REACTIONS (6)
  - Stomatitis [Recovered/Resolved]
  - Muscle strain [Recovered/Resolved]
  - Joint stiffness [Recovered/Resolved]
  - Headache [Recovered/Resolved]
  - Muscle tightness [Recovered/Resolved]
  - Limb injury [Recovered/Resolved]
